FAERS Safety Report 10932782 (Version 1)
Quarter: 2015Q1

REPORT INFORMATION
  Report Type: Spontaneous
  Country: US (occurrence: None)
  Receive Date: 20150319
  Receipt Date: 20150319
  Transmission Date: 20150721
  Serious: No
  Sender: FDA-Public Use
  Company Number: 2014CT000235

PATIENT
  Age: 50 Year
  Sex: Female

DRUGS (14)
  1. KORLYM [Suspect]
     Active Substance: MIFEPRISTONE
     Indication: CUSHING^S SYNDROME
     Route: 048
     Dates: start: 20141101
  2. NORCO [Concomitant]
     Active Substance: ACETAMINOPHEN\HYDROCODONE BITARTRATE
  3. IBUPROFEN. [Concomitant]
     Active Substance: IBUPROFEN
  4. TEMAZEPAM. [Concomitant]
     Active Substance: TEMAZEPAM
  5. OMEPRAZOLE. [Concomitant]
     Active Substance: OMEPRAZOLE
  6. ALEVE [Concomitant]
     Active Substance: NAPROXEN SODIUM
  7. SOMA [Concomitant]
     Active Substance: CARISOPRODOL
  8. AVAPRO [Concomitant]
     Active Substance: IRBESARTAN
  9. ALBUTEROL /00139501/ [Concomitant]
     Active Substance: ALBUTEROL
  10. LAMICTAL [Concomitant]
     Active Substance: LAMOTRIGINE
  11. PROPRANOLOL [Concomitant]
     Active Substance: PROPRANOLOL\PROPRANOLOL HYDROCHLORIDE
  12. SINGULAIR [Concomitant]
     Active Substance: MONTELUKAST SODIUM
  13. LORAZEPAM. [Concomitant]
     Active Substance: LORAZEPAM
  14. FLUTICASONE W/SALMETEROL [Concomitant]
     Active Substance: FLUTICASONE PROPIONATE\SALMETEROL XINAFOATE

REACTIONS (2)
  - Epistaxis [None]
  - Nasopharyngitis [None]

NARRATIVE: CASE EVENT DATE: 2014
